FAERS Safety Report 21115275 (Version 1)
Quarter: 2022Q3

REPORT INFORMATION
  Report Type: Spontaneous
  Country: US (occurrence: US)
  Receive Date: 20220721
  Receipt Date: 20220721
  Transmission Date: 20221027
  Serious: No
  Sender: FDA-Public Use
  Company Number: US-BoehringerIngelheim-2022-BI-183121

PATIENT
  Sex: Female

DRUGS (1)
  1. JARDIANCE [Suspect]
     Active Substance: EMPAGLIFLOZIN
     Indication: Type 2 diabetes mellitus
     Dosage: PRESCRIBED TO CUT THE 25 MG TABLET IN HALF AND TAKE HALF DAILY

REACTIONS (2)
  - Wrong technique in product usage process [Not Recovered/Not Resolved]
  - Blood glucose decreased [Not Recovered/Not Resolved]
